FAERS Safety Report 4765287-4 (Version None)
Quarter: 2005Q3

REPORT INFORMATION
  Report Type: 
  Country: None (occurrence: None)
  Receive Date: 20050906
  Receipt Date: 20050822
  Transmission Date: 20060218
  Serious: Yes (Hospitalization)
  Sender: FDA-Public Use
  Company Number: 2005119301

PATIENT
  Age: 82 Year
  Sex: Female

DRUGS (2)
  1. CAMPTOSAR [Suspect]
     Indication: ILL-DEFINED DISORDER
  2. CETUXIMAB (CETUXIMAB) [Suspect]
     Indication: ILL-DEFINED DISORDER
     Dosage: INTRAVENOUS
     Route: 042
     Dates: start: 20041201, end: 20050509

REACTIONS (4)
  - DERMATITIS ACNEIFORM [None]
  - ERYTHEMA [None]
  - EYELID OEDEMA [None]
  - SKIN EXFOLIATION [None]
